FAERS Safety Report 7251452-3 (Version None)
Quarter: 2011Q1

REPORT INFORMATION
  Report Type: 
  Country: None (occurrence: None)
  Receive Date: 20110128
  Receipt Date: 20110119
  Transmission Date: 20110831
  Serious: Yes (Hospitalization, Other)
  Sender: FDA-Public Use
  Company Number: PHHY2011US03704

PATIENT
  Sex: Male

DRUGS (10)
  1. SYMMETREL [Concomitant]
     Dosage: 100 MG, BID
  2. FAMPRIDINE [Concomitant]
     Dosage: 10 MG, BID
  3. FEOSOL [Concomitant]
     Dosage: 1 DF, BID
  4. VITAMIN D [Concomitant]
     Dosage: 4000 U, QD
  5. LEXAPRO [Concomitant]
     Dosage: 10 MG, QD
  6. GILENYA [Suspect]
     Indication: MULTIPLE SCLEROSIS
     Dosage: 0.5 MG, QD
     Dates: start: 20101210
  7. LOVENOX [Concomitant]
     Dosage: 40 MG, QD
  8. BACLOFEN [Concomitant]
     Dosage: 10 MG, BID
  9. VITAMIN B-12 [Concomitant]
     Dosage: 500 UG, QD
  10. BACTROBAN /NET/ [Concomitant]
     Dosage: UNK

REACTIONS (13)
  - DYSARTHRIA [None]
  - WHITE BLOOD CELL COUNT INCREASED [None]
  - RED CELL DISTRIBUTION WIDTH INCREASED [None]
  - HEPATIC ENZYME INCREASED [None]
  - PYREXIA [None]
  - MUSCULAR WEAKNESS [None]
  - HYPERTONIA [None]
  - ATAXIA [None]
  - URINARY TRACT INFECTION [None]
  - GALLBLADDER POLYP [None]
  - MEAN PLATELET VOLUME DECREASED [None]
  - MULTIPLE SCLEROSIS RELAPSE [None]
  - NEUTROPHIL COUNT INCREASED [None]
